FAERS Safety Report 7068567-5 (Version None)
Quarter: 2010Q4

REPORT INFORMATION
  Report Type: 
  Country: None (occurrence: None)
  Receive Date: 20101028
  Receipt Date: 20100921
  Transmission Date: 20110411
  Serious: Yes (Other)
  Sender: FDA-Public Use
  Company Number: PHHY2010BR71933

PATIENT
  Age: 60 Year
  Sex: Male
  Weight: 115 kg

DRUGS (2)
  1. DIOVAN AMLO FIX [Suspect]
     Dosage: 320/5 MG/DAY
  2. DIOVAN AMLO FIX [Suspect]
     Dosage: 320/10 MG/DAY

REACTIONS (3)
  - BLOOD PRESSURE INCREASED [None]
  - DIASTOLIC DYSFUNCTION [None]
  - LEFT ATRIAL DILATATION [None]
